FAERS Safety Report 7502373-X (Version None)
Quarter: 2011Q2

REPORT INFORMATION
  Report Type: 
  Country: None (occurrence: None)
  Receive Date: 20110525
  Receipt Date: 20110519
  Transmission Date: 20111010
  Serious: Yes (Death, Other)
  Sender: FDA-Public Use
  Company Number: FR-ASTELLAS-2011EU001209

PATIENT
  Sex: Male
  Weight: 59 kg

DRUGS (5)
  1. FLUCONAZOLE [Concomitant]
     Indication: ANTIFUNGAL TREATMENT
     Dosage: 400 MG, UNKNOWN/D
     Route: 065
     Dates: start: 20101105, end: 20101107
  2. ERYTHROMYCINE [Concomitant]
     Dosage: UNK
     Route: 048
  3. MICAFUNGIN INJECTION [Suspect]
     Indication: CANDIDIASIS
     Dosage: 100 MG, UNKNOWN/D
     Route: 042
     Dates: start: 20101110, end: 20101118
  4. ACTRAPID [Concomitant]
     Dosage: UNK
     Route: 042
  5. NEXIUM [Concomitant]
     Dosage: UNK
     Route: 048

REACTIONS (3)
  - DRUG INEFFECTIVE [None]
  - MULTI-ORGAN FAILURE [None]
  - PNEUMONIA ASPIRATION [None]
